FAERS Safety Report 8998296 (Version 1)
Quarter: 2013Q1

REPORT INFORMATION
  Report Type: Spontaneous
  Country: US (occurrence: US)
  Receive Date: 20130104
  Receipt Date: 20130104
  Transmission Date: 20140127
  Serious: No
  Sender: FDA-Public Use
  Company Number: US-009507513-1301USA000586

PATIENT
  Sex: Male
  Weight: 77.98 kg

DRUGS (6)
  1. CLARITIN [Suspect]
     Indication: EYE PRURITUS
  2. POTASSIUM CHLORIDE [Suspect]
     Indication: MINERAL SUPPLEMENTATION
  3. ATENOLOL [Suspect]
     Indication: HYPERTENSION
  4. ADVIL [Suspect]
     Indication: PAIN IN EXTREMITY
  5. TRIAM TABLETS [Concomitant]
     Indication: HYPERTENSION
     Dosage: 1 DF, QD
     Route: 048
     Dates: end: 20121214
  6. CYANOCOBALAMIN [Concomitant]
     Indication: ANAEMIA VITAMIN B12 DEFICIENCY

REACTIONS (1)
  - Rash pruritic [Recovering/Resolving]
